FAERS Safety Report 16025928 (Version 1)
Quarter: 2019Q1

REPORT INFORMATION
  Report Type: Spontaneous
  Country: DE (occurrence: DE)
  Receive Date: 20190302
  Receipt Date: 20190302
  Transmission Date: 20190418
  Serious: Yes (Congenital Anomaly)
  Sender: FDA-Public Use
  Company Number: DE-ACCORD-110408

PATIENT
  Age: 1 Day
  Sex: Male
  Weight: 4.02 kg

DRUGS (9)
  1. ZOLPIDEM [Suspect]
     Active Substance: ZOLPIDEM\ZOLPIDEM TARTRATE
     Indication: SLEEP DISORDER
     Dosage: 10 MG/D (BIS 5)
     Route: 064
     Dates: start: 20170616, end: 20170727
  2. ZINC CHLORIDE [Concomitant]
     Active Substance: ZINC CHLORIDE
     Indication: HERPES ZOSTER
     Route: 064
     Dates: start: 20180110, end: 20180112
  3. FEMIBION [Concomitant]
     Indication: PROPHYLAXIS OF NEURAL TUBE DEFECT
     Route: 064
     Dates: start: 20170616, end: 20170731
  4. TANNOLACT [Concomitant]
     Indication: HERPES ZOSTER
     Route: 064
     Dates: start: 20180110, end: 20180112
  5. AMITRIPTYLINE [Suspect]
     Active Substance: AMITRIPTYLINE
     Indication: SLEEP DISORDER
     Dosage: 12.5 MG/DL
     Route: 064
     Dates: start: 20170721, end: 20170731
  6. LEVOTHYROXINE. [Concomitant]
     Active Substance: LEVOTHYROXINE
     Indication: AUTOIMMUNE THYROIDITIS
     Dosage: 100 UG/D (BIS 50)
     Route: 064
     Dates: start: 20170618, end: 20180315
  7. DOXYLAMINE/DOXYLAMINE SUCCINATE [Suspect]
     Active Substance: DOXYLAMINE SUCCINATE
     Indication: SLEEP DISORDER
     Dosage: 45 (MG/D)/ 15 - 45 MG/D
     Route: 064
     Dates: start: 20170731, end: 20180215
  8. DRONABINOL. [Concomitant]
     Active Substance: DRONABINOL
     Indication: PAIN
     Route: 064
     Dates: start: 20170616, end: 20170719
  9. LEMTRADA [Concomitant]
     Active Substance: ALEMTUZUMAB
     Indication: MULTIPLE SCLEROSIS
     Route: 064

REACTIONS (2)
  - Large for dates baby [Unknown]
  - Ventricular septal defect [Unknown]

NARRATIVE: CASE EVENT DATE: 20180315
